FAERS Safety Report 25003900 (Version 2)
Quarter: 2025Q1

REPORT INFORMATION
  Report Type: Spontaneous
  Country: DE (occurrence: DE)
  Receive Date: 20250224
  Receipt Date: 20250328
  Transmission Date: 20250409
  Serious: Yes (Death, Hospitalization, Other)
  Sender: ABBVIE
  Company Number: DE-ABBVIE-6144905

PATIENT
  Age: 77 Year
  Sex: Male
  Weight: 105 kg

DRUGS (6)
  1. RINVOQ [Suspect]
     Active Substance: UPADACITINIB
     Indication: Product used for unknown indication
     Route: 048
     Dates: start: 20201113, end: 202411
  2. PREDNISOLONE [Concomitant]
     Active Substance: PREDNISOLONE
     Indication: Product used for unknown indication
     Dates: start: 20201014
  3. PREDNISOLONE [Concomitant]
     Active Substance: PREDNISOLONE
     Indication: Product used for unknown indication
     Dates: start: 20201113
  4. ISONIAZID [Concomitant]
     Active Substance: ISONIAZID
     Indication: Tuberculosis
     Dates: start: 20201218
  5. CHOLECALCIFEROL [Concomitant]
     Active Substance: CHOLECALCIFEROL
     Indication: Vitamin D deficiency
     Dates: start: 20201218
  6. CHOLECALCIFEROL [Concomitant]
     Active Substance: CHOLECALCIFEROL
     Indication: Vitamin D deficiency

REACTIONS (12)
  - Bladder transitional cell carcinoma stage III [Fatal]
  - Diabetes mellitus [Unknown]
  - Vascular graft [Unknown]
  - Dizziness [Unknown]
  - Syncope [Unknown]
  - Weight decreased [Unknown]
  - Transurethral bladder resection [Unknown]
  - Prostatectomy [Unknown]
  - Knee arthroplasty [Unknown]
  - Synovectomy [Unknown]
  - Joint debridement [Unknown]
  - Elbow operation [Unknown]

NARRATIVE: CASE EVENT DATE: 20210924
